FAERS Safety Report 5756537-6 (Version None)
Quarter: 2008Q2

REPORT INFORMATION
  Report Type: 
  Country: None (occurrence: None)
  Receive Date: 20080529
  Receipt Date: 20080513
  Transmission Date: 20081010
  Serious: Yes (Death)
  Sender: FDA-Public Use
  Company Number: 2008AL004891

PATIENT
  Age: 70 Year
  Sex: Male

DRUGS (3)
  1. DIGOXIN [Suspect]
     Indication: ATRIAL FIBRILLATION
     Dosage: .125MG PO SEVERAL YEARS
     Route: 048
  2. LASIX [Concomitant]
  3. COUMADIN [Concomitant]

REACTIONS (1)
  - VENTRICULAR FIBRILLATION [None]
